FAERS Safety Report 8353854-0 (Version None)
Quarter: 2012Q2

REPORT INFORMATION
  Report Type: 
  Country: None (occurrence: None)
  Receive Date: 20120511
  Receipt Date: 20120111
  Transmission Date: 20120825
  Serious: No
  Sender: FDA-Public Use
  Company Number: US-GLAXOSMITHKLINE-A0961220A

PATIENT
  Age: 52 Year
  Sex: Female
  Weight: 98.6 kg

DRUGS (2)
  1. TYKERB [Suspect]
     Indication: BREAST CANCER
     Dosage: 1000MG PER DAY
     Route: 065
  2. HERCEPTIN [Concomitant]

REACTIONS (5)
  - HYPERAESTHESIA [None]
  - MYALGIA [None]
  - PAIN IN EXTREMITY [None]
  - NAIL DISORDER [None]
  - NAIL RIDGING [None]
